FAERS Safety Report 19271776 (Version 1)
Quarter: 2021Q2

REPORT INFORMATION
  Report Type: Spontaneous
  Country: FR (occurrence: FR)
  Receive Date: 20210519
  Receipt Date: 20210519
  Transmission Date: 20210717
  Serious: Yes (Life-Threatening, Hospitalization, Other)
  Sender: FDA-Public Use
  Company Number: FR-AUROBINDO-AUR-APL-2021-019832

PATIENT
  Sex: Female

DRUGS (3)
  1. BUSILVEX 6 MG/ML CONCENTRATE FOR SOLUTION FOR INFUSION [Suspect]
     Active Substance: BUSULFAN
     Indication: STEM CELL TRANSPLANT
     Dosage: 3 MILLIGRAM/KILOGRAM, ONCE A DAY
     Route: 041
     Dates: start: 20180510, end: 20180514
  2. DEFIBROTIDE [Concomitant]
     Active Substance: DEFIBROTIDE (BOVINE)
     Indication: PROPHYLAXIS
     Dosage: UNK
     Route: 065
     Dates: start: 20180510, end: 20180612
  3. MELPHALAN. [Suspect]
     Active Substance: MELPHALAN
     Indication: STEM CELL TRANSPLANT
     Dosage: 4 MILLIGRAM/KILOGRAM
     Route: 041
     Dates: start: 20180510

REACTIONS (2)
  - Venoocclusive liver disease [Recovered/Resolved]
  - Pulmonary arterial hypertension [Recovering/Resolving]

NARRATIVE: CASE EVENT DATE: 201806
